FAERS Safety Report 9203851 (Version 3)
Quarter: 2013Q3

REPORT INFORMATION
  Report Type: Spontaneous
  Country: US (occurrence: US)
  Receive Date: 20130402
  Receipt Date: 20130719
  Transmission Date: 20140515
  Serious: No
  Sender: FDA-Public Use
  Company Number: US-PFIZER INC-2013099674

PATIENT
  Age: 40 Year
  Sex: Female

DRUGS (4)
  1. LYRICA [Suspect]
     Indication: FIBROMYALGIA
     Dosage: 150 MG, 3X/DAY
     Dates: start: 2009, end: 201303
  2. CELEBREX [Concomitant]
     Dosage: UNK
  3. METHADONE [Concomitant]
     Indication: PAIN
     Dosage: 3 MG, 1X/DAY
  4. PERCOCET [Concomitant]
     Indication: PAIN
     Dosage: UNK,AS NEEDED

REACTIONS (7)
  - Drug withdrawal syndrome [Not Recovered/Not Resolved]
  - Panic attack [Not Recovered/Not Resolved]
  - Anxiety [Not Recovered/Not Resolved]
  - Abdominal discomfort [Not Recovered/Not Resolved]
  - Vomiting [Not Recovered/Not Resolved]
  - Tremor [Not Recovered/Not Resolved]
  - Sensation of pressure [Not Recovered/Not Resolved]
